FAERS Safety Report 12004937 (Version 1)
Quarter: 2016Q1

REPORT INFORMATION
  Report Type: Spontaneous
  Country: JP (occurrence: JP)
  Receive Date: 20160204
  Receipt Date: 20160204
  Transmission Date: 20160526
  Serious: Yes (Life-Threatening, Other)
  Sender: FDA-Public Use
  Company Number: JP-FRESENIUS KABI-FK201600534

PATIENT
  Age: 32 Year
  Sex: Female
  Weight: 56 kg

DRUGS (5)
  1. OXYTOCIN INJECTION (MANUFACTURER UNKNOWN) [Suspect]
     Active Substance: OXYTOCIN
     Indication: UTERINE SPASM
     Route: 042
  2. METHYLERGOMETRINE MALEATE [Suspect]
     Active Substance: METHYLERGONOVINE MALEATE
     Indication: UTERINE SPASM
     Route: 011
  3. ROPIVACAINE (MANUFACTURER UNKNOWN) [Suspect]
     Active Substance: ROPIVACAINE
     Indication: EPIDURAL ANAESTHESIA
     Route: 008
  4. EPHEDRINE (MANUFACTURER UNKNOWN) [Suspect]
     Active Substance: EPHEDRINE
     Indication: HYPOTENSION
     Route: 042
  5. BUPIVACAINE (MANUFACTURER UNKNOWN) [Suspect]
     Active Substance: BUPIVACAINE
     Indication: SPINAL ANAESTHESIA
     Route: 037

REACTIONS (2)
  - Exposure during pregnancy [Recovered/Resolved]
  - Ventricular tachycardia [Recovered/Resolved]
